FAERS Safety Report 10670991 (Version 4)
Quarter: 2015Q1

REPORT INFORMATION
  Report Type: Spontaneous
  Country: CN (occurrence: None)
  Receive Date: 20141219
  Receipt Date: 20150212
  Transmission Date: 20150720
  Serious: Yes (Other)
  Sender: FDA-Public Use
  Company Number: CN2014031460

PATIENT
  Sex: Male

DRUGS (1)
  1. VIREAD [Suspect]
     Active Substance: TENOFOVIR DISOPROXIL FUMARATE
     Indication: HEPATITIS B
     Dosage: 1 UNK, QD, ORAL
     Route: 048
     Dates: start: 201311

REACTIONS (3)
  - Drug resistance [None]
  - Viral load increased [None]
  - Drug ineffective [None]

NARRATIVE: CASE EVENT DATE: 2014
